FAERS Safety Report 5720800-5 (Version None)
Quarter: 2008Q2

REPORT INFORMATION
  Report Type: 
  Country: None (occurrence: None)
  Receive Date: 20080425
  Receipt Date: 20080425
  Transmission Date: 20081010
  Serious: No
  Sender: FDA-Public Use
  Company Number: None

PATIENT
  Age: 62 Year
  Sex: Male

DRUGS (1)
  1. IOPROMIDE [Suspect]
     Dosage: 5 ONCE IV
     Route: 042
     Dates: start: 20070511, end: 20070511

REACTIONS (2)
  - NAUSEA [None]
  - VOMITING [None]
